FAERS Safety Report 5449520-1 (Version None)
Quarter: 2007Q3

REPORT INFORMATION
  Report Type: 
  Country: None (occurrence: None)
  Receive Date: 20070907
  Receipt Date: 20070828
  Transmission Date: 20080115
  Serious: Yes (Hospitalization)
  Sender: FDA-Public Use
  Company Number: SPV1-2007-03940

PATIENT
  Age: 33 Year
  Sex: Female
  Weight: 57.1 kg

DRUGS (3)
  1. LIALDA [Suspect]
     Indication: COLITIS ULCERATIVE
     Dosage: 1.2 G, 1X/DAY: QD, ORAL
     Route: 048
     Dates: start: 20070822, end: 20070823
  2. OSMOPREP [Concomitant]
  3. FOLIC ACID [Concomitant]

REACTIONS (2)
  - ACCIDENTAL OVERDOSE [None]
  - BRADYCARDIA [None]
